FAERS Safety Report 4348150-2 (Version None)
Quarter: 2004Q2

REPORT INFORMATION
  Report Type: 
  Country: None (occurrence: None)
  Receive Date: 20040422
  Receipt Date: 20040406
  Transmission Date: 20050107
  Serious: Yes (Other)
  Sender: FDA-Public Use
  Company Number: PHHO2004GB02897

PATIENT
  Age: 54 Year
  Sex: Female
  Weight: 66 kg

DRUGS (3)
  1. FEMARA [Suspect]
     Indication: BREAST CANCER
     Dosage: 2.5 MG QD ORAL
     Route: 048
     Dates: start: 20040127
  2. ZOLEDRONATE (ZOLEDRONATE) [Suspect]
     Indication: BREAST CANCER
     Dosage: INTRAVENOUS
     Route: 042
     Dates: start: 20040127
  3. CALCICHEW D3 [Concomitant]

REACTIONS (7)
  - ANTERIOR CHAMBER INFLAMMATION [None]
  - EYE PAIN [None]
  - EYE REDNESS [None]
  - INFLUENZA LIKE ILLNESS [None]
  - INTRAOCULAR PRESSURE INCREASED [None]
  - IRIDOCYCLITIS [None]
  - MYALGIA [None]
